FAERS Safety Report 13737683 (Version 1)
Quarter: 2017Q3

REPORT INFORMATION
  Report Type: Spontaneous
  Country: US (occurrence: US)
  Receive Date: 20170710
  Receipt Date: 20170710
  Transmission Date: 20171127
  Serious: Yes (Other)
  Sender: FDA-Public Use
  Company Number: US-SAOL THERAPEUTICS-2016SAO00368

PATIENT
  Age: 52 Year
  Sex: Female

DRUGS (2)
  1. LIORESAL [Suspect]
     Active Substance: BACLOFEN
     Indication: CEREBRAL PALSY
     Dosage: 115 ?G, \DAY
     Route: 037
  2. LIORESAL [Suspect]
     Active Substance: BACLOFEN
     Indication: MUSCLE SPASTICITY

REACTIONS (2)
  - Hypertonia [Unknown]
  - Asthenia [Unknown]

NARRATIVE: CASE EVENT DATE: 201604
